FAERS Safety Report 15626640 (Version 1)
Quarter: 2018Q4

REPORT INFORMATION
  Report Type: Spontaneous
  Country: US (occurrence: US)
  Receive Date: 20181112
  Receipt Date: 20181112
  Transmission Date: 20190205
  Serious: No
  Sender: FDA-Public Use
  Company Number: None

PATIENT
  Sex: Female

DRUGS (1)
  1. ZOLEDRONIC ACID INF BTL ++ 5MG/100ML BRECKENRIDGE [Suspect]
     Active Substance: ZOLEDRONIC ACID
     Indication: OSTEOPOROSIS
     Dosage: 5 MG ONCE A YEAR INTRAVENOUSLY
     Route: 042
     Dates: start: 20181016

REACTIONS (6)
  - Headache [None]
  - Nausea [None]
  - Pyrexia [None]
  - Fatigue [None]
  - Myalgia [None]
  - Diarrhoea [None]
